FAERS Safety Report 17504827 (Version 2)
Quarter: 2020Q1

REPORT INFORMATION
  Report Type: Spontaneous
  Country: US (occurrence: US)
  Receive Date: 20200305
  Receipt Date: 20200317
  Transmission Date: 20200409
  Serious: Yes (Other)
  Sender: FDA-Public Use
  Company Number: US-ASTRAZENECA-2020SE30548

PATIENT
  Age: 63 Year
  Sex: Female
  Weight: 93.9 kg

DRUGS (22)
  1. JANUVIA [Concomitant]
     Active Substance: SITAGLIPTIN PHOSPHATE
     Dosage: 100.0MG UNKNOWN
  2. ALLOPURINOL. [Concomitant]
     Active Substance: ALLOPURINOL
     Indication: GOUT
  3. FEXOFENADINE [Concomitant]
     Active Substance: FEXOFENADINE HYDROCHLORIDE
  4. LOSARTAN. [Concomitant]
     Active Substance: LOSARTAN
     Dosage: 100-25 MG TAB ONCE A DAY
  5. PREGABALIN. [Concomitant]
     Active Substance: PREGABALIN
  6. CALCIUM [Concomitant]
     Active Substance: CALCIUM
     Dosage: 5.325MG UNKNOWN
  7. METFORMIN [Concomitant]
     Active Substance: METFORMIN HYDROCHLORIDE
  8. IPRATROPIUM BROMIDE. [Concomitant]
     Active Substance: IPRATROPIUM BROMIDE
  9. FERROUS SULFATE. [Concomitant]
     Active Substance: FERROUS SULFATE
  10. MAGNESIUM CITRATE. [Concomitant]
     Active Substance: MAGNESIUM CITRATE
     Dosage: 1.7 GM/30 ML
  11. ROSUVASTATIN CALCIUM. [Suspect]
     Active Substance: ROSUVASTATIN CALCIUM
     Indication: BLOOD CHOLESTEROL
     Route: 048
  12. ASPIRIN. [Concomitant]
     Active Substance: ASPIRIN
  13. BYDUREON BCISE [Suspect]
     Active Substance: EXENATIDE
     Dosage: 2 MG/ 0.85 ML
     Route: 065
     Dates: start: 20190620, end: 20200227
  14. OMEPRAZOLE. [Suspect]
     Active Substance: OMEPRAZOLE
     Route: 048
  15. BUTALBITAL [Concomitant]
     Active Substance: BUTALBITAL
     Indication: HEADACHE
     Dosage: AS NEEDED
  16. VITAMIN D3 [Concomitant]
     Active Substance: CHOLECALCIFEROL
     Indication: VITAMIN D DECREASED
     Dosage: 5000 UNIT
  17. WELCHOL [Concomitant]
     Active Substance: COLESEVELAM HYDROCHLORIDE
  18. ZOLOFT [Concomitant]
     Active Substance: SERTRALINE HYDROCHLORIDE
     Indication: DEPRESSION
  19. HYDROCODONE [Concomitant]
     Active Substance: HYDROCODONE
     Indication: ANALGESIC THERAPY
     Dosage: 5.325MG UNKNOWN
     Dates: start: 20200227
  20. MELOXICAM. [Concomitant]
     Active Substance: MELOXICAM
  21. METOPROLO TARTRATE [Suspect]
     Active Substance: METOPROLOL TARTRATE
     Indication: BLOOD PRESSURE MEASUREMENT
     Route: 048
  22. JARDIANCE [Concomitant]
     Active Substance: EMPAGLIFLOZIN
     Indication: DIABETES MELLITUS
     Dosage: 25.0MG UNKNOWN

REACTIONS (35)
  - Chest pain [Unknown]
  - Hypertension [Unknown]
  - Mobility decreased [Unknown]
  - Obesity [Unknown]
  - Rheumatoid arthritis [Unknown]
  - Type 2 diabetes mellitus [Unknown]
  - Headache [Unknown]
  - Coronary artery disease [Unknown]
  - Blood pressure abnormal [Unknown]
  - Vitiligo [Unknown]
  - Blood urea nitrogen/creatinine ratio decreased [Unknown]
  - Dizziness [Unknown]
  - Mean cell haemoglobin decreased [Unknown]
  - Blood sodium increased [Unknown]
  - Blood calcium abnormal [Unknown]
  - Carpal tunnel syndrome [Unknown]
  - Rheumatoid factor positive [Unknown]
  - Gastrooesophageal reflux disease [Unknown]
  - Decreased appetite [Unknown]
  - Abdominal pain [Unknown]
  - Paraesthesia [Unknown]
  - Major depression [Unknown]
  - Hepatic steatosis [Unknown]
  - Platelet count increased [Unknown]
  - Dyspnoea [Unknown]
  - Hyperglycaemia [Unknown]
  - Hypertensive nephropathy [Unknown]
  - Chronic kidney disease [Unknown]
  - Pancreatitis acute [Not Recovered/Not Resolved]
  - Ill-defined disorder [Unknown]
  - Type V hyperlipidaemia [Unknown]
  - Dry skin [Unknown]
  - Nail disorder [Unknown]
  - Arthralgia [Unknown]
  - Constipation [Unknown]

NARRATIVE: CASE EVENT DATE: 1990
